FAERS Safety Report 14873972 (Version 9)
Quarter: 2020Q3

REPORT INFORMATION
  Report Type: Report from Study
  Country: CA (occurrence: CA)
  Receive Date: 20180510
  Receipt Date: 20200902
  Transmission Date: 20201102
  Serious: Yes (Death, Hospitalization, Other)
  Sender: FDA-Public Use
  Company Number: PHHY2017CA194045

PATIENT
  Age: 57 Year
  Sex: Female

DRUGS (6)
  1. CLONAZEPAM. [Suspect]
     Active Substance: CLONAZEPAM
     Indication: PRODUCT USED FOR UNKNOWN INDICATION
     Dosage: UNK
     Route: 065
  2. CEPHALEXIN. [Suspect]
     Active Substance: CEPHALEXIN
     Indication: PRODUCT USED FOR UNKNOWN INDICATION
     Dosage: UNK
     Route: 065
  3. SANDOSTATIN LAR DEPOT [Suspect]
     Active Substance: OCTREOTIDE ACETATE
     Dosage: 30 MG, QMO (EVERY 4 WEEKS)
     Route: 030
     Dates: start: 20200103
  4. SANDOSTATIN LAR DEPOT [Suspect]
     Active Substance: OCTREOTIDE ACETATE
  5. SANDOSTATIN LAR DEPOT [Suspect]
     Active Substance: OCTREOTIDE ACETATE
     Indication: ACROMEGALY
     Dosage: 30 MG, QMO (EVERY 4 WEEKS)
     Route: 030
     Dates: start: 20080801
  6. CARBAMAZEPINE. [Suspect]
     Active Substance: CARBAMAZEPINE
     Indication: PRODUCT USED FOR UNKNOWN INDICATION
     Dosage: UNK
     Route: 065

REACTIONS (31)
  - Bone cancer [Unknown]
  - Rhinorrhoea [Unknown]
  - Malignant neoplasm progression [Fatal]
  - Breast cancer [Unknown]
  - Illness [Unknown]
  - Headache [Unknown]
  - Rib fracture [Unknown]
  - Arthralgia [Unknown]
  - Breast tenderness [Unknown]
  - Pneumonia [Unknown]
  - Feeling abnormal [Unknown]
  - Breast pain [Unknown]
  - Cancer pain [Unknown]
  - Emotional disorder [Unknown]
  - Nasopharyngitis [Unknown]
  - Productive cough [Unknown]
  - Drug hypersensitivity [Unknown]
  - Memory impairment [Unknown]
  - Nasal congestion [Unknown]
  - Cough [Unknown]
  - Neoplasm malignant [Fatal]
  - Pain [Unknown]
  - Pain in extremity [Unknown]
  - Palpitations [Unknown]
  - Metastasis [Unknown]
  - Hypertension [Recovering/Resolving]
  - Decreased appetite [Unknown]
  - Vomiting [Unknown]
  - Fatigue [Unknown]
  - Diarrhoea [Not Recovered/Not Resolved]
  - Injection site pain [Unknown]

NARRATIVE: CASE EVENT DATE: 20180503
